FAERS Safety Report 16743982 (Version 1)
Quarter: 2019Q3

REPORT INFORMATION
  Report Type: Spontaneous
  Country: US (occurrence: US)
  Receive Date: 20190827
  Receipt Date: 20190827
  Transmission Date: 20191005
  Serious: Yes (Other)
  Sender: FDA-Public Use
  Company Number: US-TEVA-2019-US-1098649

PATIENT
  Age: 52 Year
  Sex: Female

DRUGS (2)
  1. CARBIDOPA/LEVODOPA [Suspect]
     Active Substance: CARBIDOPA\LEVODOPA
     Indication: PARKINSON^S DISEASE
     Dosage: CARBIDOPA/LEVODOPA 25/250, FIVE TIMES DAILY
     Route: 065
  2. RASAGILINE. [Concomitant]
     Active Substance: RASAGILINE
     Indication: PARKINSON^S DISEASE
     Route: 065

REACTIONS (1)
  - Oculogyric crisis [Recovered/Resolved]
